FAERS Safety Report 6601884-9 (Version None)
Quarter: 2010Q1

REPORT INFORMATION
  Report Type: 
  Country: None (occurrence: None)
  Receive Date: 20100218
  Receipt Date: 20100205
  Transmission Date: 20100710
  Serious: Yes (Hospitalization)
  Sender: FDA-Public Use
  Company Number: 8050733

PATIENT
  Sex: Male
  Weight: 54 kg

DRUGS (6)
  1. CERTOLIZUMAB PEGOL (CERTOLIZUMAB PEGOL) [Suspect]
     Indication: CROHN'S DISEASE
     Dosage: (400 MG, EVERY 2 WEEKS AT WO? 2 AND 4 AND THEN EVERY 4 WEEKS  SUBCUTANEOUS)
     Route: 058
     Dates: start: 20090721, end: 20091219
  2. PENTASA [Concomitant]
  3. LOSEC [Concomitant]
  4. FERROUS GLUCONATE [Concomitant]
  5. TYLENOL-500 [Concomitant]
  6. MOTRIN [Concomitant]

REACTIONS (11)
  - ABSCESS [None]
  - ANAEMIA [None]
  - ASCITES [None]
  - CROHN'S DISEASE [None]
  - DYSPEPSIA [None]
  - GASTROINTESTINAL HAEMORRHAGE [None]
  - INTESTINAL FISTULA [None]
  - PLEURAL EFFUSION [None]
  - PSOAS ABSCESS [None]
  - PULMONARY EMBOLISM [None]
  - RECTAL HAEMORRHAGE [None]
